FAERS Safety Report 22143015 (Version 1)
Quarter: 2023Q1

REPORT INFORMATION
  Report Type: Spontaneous
  Country: US (occurrence: US)
  Receive Date: 20230327
  Receipt Date: 20230327
  Transmission Date: 20230418
  Serious: No
  Sender: FDA-Public Use
  Company Number: US-TAKEDA-2023TUS029887

PATIENT
  Sex: Female

DRUGS (3)
  1. DEXTROAMPHET SACCHARAT, AMPHET ASPARTATE, DEXTROAMPHET SULFATE AND AMP [Suspect]
     Active Substance: AMPHETAMINE ASPARTATE\AMPHETAMINE SULFATE\DEXTROAMPHETAMINE SACCHARATE\DEXTROAMPHETAMINE SULFATE
     Indication: Product used for unknown indication
     Dosage: 20 MILLIGRAM
     Route: 065
  2. NORCO [Suspect]
     Active Substance: ACETAMINOPHEN\HYDROCODONE BITARTRATE
     Indication: Product used for unknown indication
     Dosage: 1 DOSAGE FORM, TID
     Route: 065
  3. NORCO [Suspect]
     Active Substance: ACETAMINOPHEN\HYDROCODONE BITARTRATE
     Dosage: 0.5 DOSAGE FORM, Q2HR
     Route: 065

REACTIONS (12)
  - Drug hypersensitivity [Unknown]
  - Malaise [Unknown]
  - Bowel movement irregularity [Unknown]
  - Abdominal distension [Unknown]
  - Nerve injury [Unknown]
  - Diabetic eye disease [Unknown]
  - Hypoaesthesia [Unknown]
  - Paraesthesia [Unknown]
  - Vomiting [Unknown]
  - Psychomotor hyperactivity [Unknown]
  - Product use issue [Unknown]
  - Product availability issue [Unknown]
